FAERS Safety Report 12130555 (Version 1)
Quarter: 2016Q1

REPORT INFORMATION
  Report Type: Spontaneous
  Country: US (occurrence: None)
  Receive Date: 20160229
  Receipt Date: 20160229
  Transmission Date: 20160526
  Serious: Yes (Hospitalization)
  Sender: FDA-Public Use
  Company Number: None

PATIENT
  Age: 56 Year
  Sex: Female
  Weight: 100.9 kg

DRUGS (14)
  1. PROBIOTICS [Concomitant]
     Active Substance: PROBIOTICS NOS
  2. VISTARIL [Concomitant]
     Active Substance: HYDROXYZINE PAMOATE
  3. OMEPRAZOLE. [Concomitant]
     Active Substance: OMEPRAZOLE
  4. SPIRONOLACTONE. [Concomitant]
     Active Substance: SPIRONOLACTONE
  5. ROCEPHIN [Concomitant]
     Active Substance: CEFTRIAXONE SODIUM
  6. LACTULOSE. [Concomitant]
     Active Substance: LACTULOSE
  7. CIPROFLOXACIN. [Concomitant]
     Active Substance: CIPROFLOXACIN
  8. INSULIN ASPART [Concomitant]
     Active Substance: INSULIN ASPART
  9. VIEKIRA PAK [Suspect]
     Active Substance: DASABUVIR\OMBITASVIR\PARITAPREVIR\RITONAVIR
     Indication: HEPATITIS C
     Dosage: 12.5MG/75/50MG 1XQD ORAL?
     Route: 048
     Dates: start: 20150824, end: 20151109
  10. LEVEMIR [Concomitant]
     Active Substance: INSULIN DETEMIR
  11. RIBAVIRIN. [Suspect]
     Active Substance: RIBAVIRIN
     Indication: HEPATITIS C
     Route: 048
     Dates: start: 20150824, end: 20151109
  12. PERCOCET [Concomitant]
     Active Substance: ACETAMINOPHEN\OXYCODONE HYDROCHLORIDE
  13. FLEXERIL [Concomitant]
     Active Substance: CYCLOBENZAPRINE HYDROCHLORIDE
  14. METFORMIN [Concomitant]
     Active Substance: METFORMIN HYDROCHLORIDE

REACTIONS (8)
  - Metabolic acidosis [None]
  - Escherichia urinary tract infection [None]
  - Lethargy [None]
  - Leukocytosis [None]
  - Asthenia [None]
  - Muscle spasms [None]
  - Arthralgia [None]
  - Pyrexia [None]

NARRATIVE: CASE EVENT DATE: 20151009
